FAERS Safety Report 11628725 (Version 1)
Quarter: 2015Q4

REPORT INFORMATION
  Report Type: Spontaneous
  Country: US (occurrence: None)
  Receive Date: 20151013
  Receipt Date: 20151013
  Transmission Date: 20160304
  Serious: Yes (Hospitalization)
  Sender: FDA-Public Use
  Company Number: None

PATIENT
  Age: 60 Year
  Sex: Male
  Weight: 79.2 kg

DRUGS (2)
  1. LEUPROLIDE ACETATE. [Suspect]
     Active Substance: LEUPROLIDE ACETATE
     Dates: end: 20150625
  2. CASODEX [Suspect]
     Active Substance: BICALUTAMIDE
     Dates: end: 20150916

REACTIONS (4)
  - Head injury [None]
  - Subdural haemorrhage [None]
  - Cerebellar haemorrhage [None]
  - Fall [None]

NARRATIVE: CASE EVENT DATE: 20151006
